FAERS Safety Report 24977263 (Version 2)
Quarter: 2025Q1

REPORT INFORMATION
  Report Type: Spontaneous
  Country: JP (occurrence: JP)
  Receive Date: 20250217
  Receipt Date: 20250313
  Transmission Date: 20250409
  Serious: Yes (Death)
  Sender: CHEPLAPHARM
  Company Number: JP-CHEPLA-2025001927

PATIENT
  Age: 69 Year
  Sex: Female
  Weight: 38 kg

DRUGS (6)
  1. VALGANCICLOVIR [Suspect]
     Active Substance: VALGANCICLOVIR
     Indication: Cytomegalovirus infection
  2. VALGANCICLOVIR [Suspect]
     Active Substance: VALGANCICLOVIR
     Indication: Pneumocystis jirovecii pneumonia
  3. TOCILIZUMAB [Suspect]
     Active Substance: TOCILIZUMAB
     Indication: Still^s disease
     Dosage: 8 MG/KG OF TCZ INTRAVENOUSLY EVERY 2 WEEKS
  4. SULFAMETHOXAZOLE\TRIMETHOPRIM [Suspect]
     Active Substance: SULFAMETHOXAZOLE\TRIMETHOPRIM
     Indication: Pneumocystis jirovecii pneumonia
  5. SULFAMETHOXAZOLE\TRIMETHOPRIM [Suspect]
     Active Substance: SULFAMETHOXAZOLE\TRIMETHOPRIM
     Indication: Cytomegalovirus infection
  6. PREDNISOLONE [Suspect]
     Active Substance: PREDNISOLONE
     Indication: Still^s disease
     Dosage: DAILY DOSE: 45 MILLIGRAM

REACTIONS (2)
  - Haemophagocytic lymphohistiocytosis [Fatal]
  - Off label use [Recovered/Resolved]
